FAERS Safety Report 5427446-7 (Version None)
Quarter: 2007Q3

REPORT INFORMATION
  Report Type: 
  Country: None (occurrence: None)
  Receive Date: 20070824
  Receipt Date: 20070824
  Transmission Date: 20080115
  Serious: Yes (Other)
  Sender: FDA-Public Use
  Company Number: None

PATIENT
  Age: 80 Year
  Sex: Female
  Weight: 54.4316 kg

DRUGS (1)
  1. DEXAMETHASONE [Suspect]
     Indication: PROPHYLAXIS OF NAUSEA AND VOMITING
     Dosage: 1 TABLET DAILY DENTAL
     Route: 004
     Dates: start: 20070709, end: 20070804

REACTIONS (3)
  - ANXIETY [None]
  - DEMENTIA [None]
  - HALLUCINATIONS, MIXED [None]
